APPROVED DRUG PRODUCT: HYDROCODONE BITARTRATE AND HOMATROPINE METHYLBROMIDE
Active Ingredient: HOMATROPINE METHYLBROMIDE; HYDROCODONE BITARTRATE
Strength: 1.5MG/5ML;5MG/5ML
Dosage Form/Route: SYRUP;ORAL
Application: A203535 | Product #001 | TE Code: AA
Applicant: NOVEL LABORATORIES INC
Approved: Feb 13, 2017 | RLD: No | RS: No | Type: RX